FAERS Safety Report 6010113-9 (Version None)
Quarter: 2008Q4

REPORT INFORMATION
  Report Type: 
  Country: None (occurrence: None)
  Receive Date: 20081216
  Receipt Date: 20081205
  Transmission Date: 20090506
  Serious: Yes (Other)
  Sender: FDA-Public Use
  Company Number: 2008SP024819

PATIENT
  Age: 48 Year
  Sex: Female

DRUGS (2)
  1. RIBAVIRIN [Suspect]
     Indication: HEPATITIS C
  2. INFERGEN [Suspect]
     Indication: HEPATITIS C
     Dosage: 9 MCG; QD;, 9 MCG; QOD;

REACTIONS (10)
  - ANGIOTENSIN CONVERTING ENZYME INCREASED [None]
  - ENDOPHTHALMITIS [None]
  - HEPATIC ENZYME INCREASED [None]
  - MALAISE [None]
  - OCULAR SARCOIDOSIS [None]
  - PYREXIA [None]
  - RENAL FAILURE ACUTE [None]
  - UVEITIS [None]
  - VISUAL ACUITY REDUCED [None]
  - WHITE BLOOD CELL COUNT INCREASED [None]
